FAERS Safety Report 25210451 (Version 3)
Quarter: 2025Q2

REPORT INFORMATION
  Report Type: Spontaneous
  Country: US (occurrence: US)
  Receive Date: 20250417
  Receipt Date: 20250430
  Transmission Date: 20250716
  Serious: No
  Sender: PFIZER
  Company Number: US-PFIZER INC-202500078601

PATIENT
  Age: 68 Year
  Sex: Female

DRUGS (6)
  1. MEKTOVI [Suspect]
     Active Substance: BINIMETINIB
     Indication: Metastatic malignant melanoma
     Dosage: UNK, DAILY (15MG 1 TABLET 4 TIMES A DAY, WAS SUPPOSE TO BE 3)
     Dates: start: 20250325
  2. MEKTOVI [Suspect]
     Active Substance: BINIMETINIB
     Indication: Metastases to liver
     Dosage: 45 MG, 2X/DAY
     Route: 048
  3. MEKTOVI [Suspect]
     Active Substance: BINIMETINIB
     Indication: Metastases to lung
     Dosage: 60 MG, 2X/DAY (ACCIDENTALLY TAKEN 4 PILLS OF THE MEKTOVI INSTEAD OF 3 PILLS)
     Route: 048
  4. BRAFTOVI [Suspect]
     Active Substance: ENCORAFENIB
     Indication: Metastatic malignant melanoma
     Dosage: 75 MG, DAILY (TAKE 450 MG BY MOUTH DAILY)
     Route: 048
  5. BRAFTOVI [Suspect]
     Active Substance: ENCORAFENIB
     Indication: Metastases to liver
  6. BRAFTOVI [Suspect]
     Active Substance: ENCORAFENIB
     Indication: Metastases to lung

REACTIONS (1)
  - Urinary tract infection [Not Recovered/Not Resolved]
